FAERS Safety Report 10177550 (Version 2)
Quarter: 2014Q2

REPORT INFORMATION
  Report Type: Spontaneous
  Country: BE (occurrence: BE)
  Receive Date: 20140516
  Receipt Date: 20140613
  Transmission Date: 20141212
  Serious: Yes (Life-Threatening, Hospitalization, Other)
  Sender: FDA-Public Use
  Company Number: BE-ASTRAZENECA-2014SE33381

PATIENT
  Age: 26435 Day
  Sex: Female
  Weight: 65 kg

DRUGS (9)
  1. ZESTORETIC [Suspect]
     Indication: HYPERTENSION
     Dosage: 20/12.5 MG EVERY MORNING
     Route: 048
     Dates: start: 2011
  2. SEROQUEL XR [Suspect]
     Indication: PSYCHOTIC DISORDER
     Route: 048
     Dates: start: 2013
  3. ISOTEN MINOR [Concomitant]
     Indication: HYPERTENSION
     Route: 048
     Dates: start: 2011
  4. ZANTAC [Concomitant]
     Indication: GASTROOESOPHAGEAL REFLUX DISEASE
     Route: 048
     Dates: start: 2011
  5. APOCARD RETARD [Concomitant]
     Indication: ATRIAL FIBRILLATION
     Route: 048
     Dates: start: 2011
  6. HALDOL [Concomitant]
     Indication: PSYCHOTIC DISORDER
     Route: 048
     Dates: start: 20130802
  7. PRADAXA [Concomitant]
     Indication: ATRIAL FIBRILLATION
     Dates: start: 2013
  8. GARDENAL [Concomitant]
     Indication: EPILEPSY
     Route: 048
     Dates: start: 2013
  9. D-CURE [Concomitant]
     Indication: OSTEOPOROSIS
     Route: 048

REACTIONS (1)
  - Intestinal infarction [Unknown]
